FAERS Safety Report 10200168 (Version 1)
Quarter: 2014Q2

REPORT INFORMATION
  Report Type: Spontaneous
  Country: IT (occurrence: IT)
  Receive Date: 20140527
  Receipt Date: 20140527
  Transmission Date: 20141212
  Serious: Yes (Hospitalization)
  Sender: FDA-Public Use
  Company Number: IT-TEVA-482530ISR

PATIENT
  Age: 46 Year
  Sex: Female

DRUGS (1)
  1. BUDESONIDE [Suspect]
     Indication: ASTHMA
     Route: 055
     Dates: start: 20131018, end: 20131109

REACTIONS (1)
  - Erythema of eyelid [Unknown]
